FAERS Safety Report 7579452-4 (Version None)
Quarter: 2011Q2

REPORT INFORMATION
  Report Type: 
  Country: None (occurrence: None)
  Receive Date: 20110629
  Receipt Date: 20110617
  Transmission Date: 20111010
  Serious: Yes (Life-Threatening, Hospitalization, Other)
  Sender: FDA-Public Use
  Company Number: GB-AMGEN-GBRSP2011020841

PATIENT
  Age: 82 Year
  Sex: Female
  Weight: 60 kg

DRUGS (1)
  1. ENBREL [Suspect]
     Indication: RHEUMATOID ARTHRITIS
     Dosage: 50 MG, WEEKLY
     Route: 058

REACTIONS (7)
  - LOWER RESPIRATORY TRACT INFECTION [None]
  - DISORIENTATION [None]
  - BRONCHIECTASIS [None]
  - CHEST PAIN [None]
  - ANGINA PECTORIS [None]
  - CELLULITIS [None]
  - IMMUNE SYSTEM DISORDER [None]
